FAERS Safety Report 24249022 (Version 2)
Quarter: 2024Q4

REPORT INFORMATION
  Report Type: Report from Study
  Country: GB (occurrence: GB)
  Receive Date: 20240826
  Receipt Date: 20241107
  Transmission Date: 20250114
  Serious: Yes (Hospitalization, Other)
  Sender: NOVARTIS
  Company Number: GB-002147023-NVSC2024GB001715

PATIENT
  Age: 59 Year
  Sex: Female

DRUGS (2)
  1. MAYZENT [Suspect]
     Active Substance: SIPONIMOD
     Indication: Secondary progressive multiple sclerosis
     Dosage: 0.5 MG, QD (STRENGTH: 0.25 MG)
     Route: 048
     Dates: start: 20240102
  2. MAYZENT [Suspect]
     Active Substance: SIPONIMOD
     Indication: Multiple sclerosis
     Dosage: 2 MG, QD (STRENGTH: 2 MG)
     Route: 048
     Dates: start: 20240103

REACTIONS (19)
  - Deep vein thrombosis [Unknown]
  - Blood pressure increased [Not Recovered/Not Resolved]
  - Headache [Not Recovered/Not Resolved]
  - Hypertension [Recovering/Resolving]
  - Balance disorder [Unknown]
  - Somnolence [Unknown]
  - Arthralgia [Unknown]
  - Photopsia [Not Recovered/Not Resolved]
  - Fatigue [Unknown]
  - Pain in extremity [Recovering/Resolving]
  - Urinary incontinence [Unknown]
  - Pain [Not Recovered/Not Resolved]
  - Mobility decreased [Not Recovered/Not Resolved]
  - Discomfort [Unknown]
  - Visual impairment [Not Recovered/Not Resolved]
  - Oedema peripheral [Unknown]
  - Localised oedema [Unknown]
  - Heart rate decreased [Unknown]
  - Discharge [Unknown]

NARRATIVE: CASE EVENT DATE: 20240102
